FAERS Safety Report 11930416 (Version 1)
Quarter: 2016Q1

REPORT INFORMATION
  Report Type: Spontaneous
  Country: US (occurrence: None)
  Receive Date: 20160120
  Receipt Date: 20160120
  Transmission Date: 20160526
  Serious: Yes (Hospitalization)
  Sender: FDA-Public Use
  Company Number: None

PATIENT
  Age: 76 Year
  Sex: Male
  Weight: 78.4 kg

DRUGS (2)
  1. CLOPIDOGREL [Suspect]
     Active Substance: CLOPIDOGREL BISULFATE
     Indication: CORONARY ARTERIAL STENT INSERTION
     Route: 048
     Dates: start: 20151016
  2. ASPIRIN. [Suspect]
     Active Substance: ASPIRIN
     Indication: CORONARY ARTERIAL STENT INSERTION
     Route: 048
     Dates: start: 20151014

REACTIONS (7)
  - Anaemia [None]
  - Gastric haemorrhage [None]
  - Haematochezia [None]
  - Musculoskeletal pain [None]
  - Gastritis [None]
  - Alcohol use [None]
  - Faeces discoloured [None]

NARRATIVE: CASE EVENT DATE: 20151114
